FAERS Safety Report 9897339 (Version 1)
Quarter: 2014Q1

REPORT INFORMATION
  Report Type: Spontaneous
  Country: US (occurrence: US)
  Receive Date: 20140214
  Receipt Date: 20140214
  Transmission Date: 20141002
  Serious: Yes (Death)
  Sender: FDA-Public Use
  Company Number: US-AMGEN-USASP2014010620

PATIENT
  Age: 75 Year
  Sex: Female

DRUGS (10)
  1. ENBREL [Suspect]
     Indication: PRODUCT USED FOR UNKNOWN INDICATION
     Dosage: 50 MG, QWK
     Route: 058
  2. ZOLPIDEM [Concomitant]
     Dosage: 10 MG, UNK
  3. PREDNISONE [Concomitant]
     Dosage: 5 MG, UNK
  4. LEFLUNOMIDE [Concomitant]
     Dosage: 20 MG, UNK
  5. GABAPENTIN [Concomitant]
     Dosage: 100 MG, UNK
  6. OMEPRAZOLE [Concomitant]
     Dosage: 10 MG, UNK
  7. OXYCODONE [Concomitant]
     Dosage: 5 MG, UNK
  8. BACTRIM [Concomitant]
     Dosage: 400-80 MG, UNK
  9. OXYCONTIN [Concomitant]
     Dosage: 10 MG, UNK
  10. CALCIUM +D                         /00944201/ [Concomitant]
     Dosage: UNK

REACTIONS (1)
  - Death [Fatal]
